FAERS Safety Report 7927163-5 (Version None)
Quarter: 2011Q4

REPORT INFORMATION
  Report Type: 
  Country: None (occurrence: None)
  Receive Date: 20111116
  Receipt Date: 20111103
  Transmission Date: 20120403
  Serious: Yes (Other)
  Sender: FDA-Public Use
  Company Number: 1000025051

PATIENT
  Age: 43 Year
  Sex: Male
  Weight: 85 kg

DRUGS (3)
  1. ZOPICLONE (ZOPICLONE) [Concomitant]
  2. ESCITALOPRAM OXALATE [Suspect]
     Indication: DEPRESSION
     Dosage: 20;5 MG (20;5 MG, 1 IN 1 D), ORAL
     Route: 048
  3. ESCITALOPRAM OXALATE [Suspect]
     Indication: DEPRESSION
     Dosage: 5;10 MG (5; 10 MG,1 IN 1 D), ORAL
     Route: 048
     Dates: start: 20091120

REACTIONS (5)
  - WEIGHT DECREASED [None]
  - LIBIDO INCREASED [None]
  - HYPERSEXUALITY [None]
  - MIDDLE INSOMNIA [None]
  - ENERGY INCREASED [None]
